FAERS Safety Report 6110252-8 (Version None)
Quarter: 2009Q1

REPORT INFORMATION
  Report Type: 
  Country: None (occurrence: None)
  Receive Date: 20090309
  Receipt Date: 20090309
  Transmission Date: 20090719
  Serious: No
  Sender: FDA-Public Use
  Company Number: None

PATIENT
  Age: 57 Year
  Sex: Female
  Weight: 72.5755 kg

DRUGS (1)
  1. RECLAST [Suspect]
     Indication: OSTEOPOROSIS
     Dosage: 5 MG

REACTIONS (7)
  - ARTHRALGIA [None]
  - EYE PAIN [None]
  - HEADACHE [None]
  - HYPERACUSIS [None]
  - MYALGIA [None]
  - NAUSEA [None]
  - PHOTOPHOBIA [None]
